FAERS Safety Report 16802462 (Version 3)
Quarter: 2019Q4

REPORT INFORMATION
  Report Type: Spontaneous
  Country: JP (occurrence: JP)
  Receive Date: 20190912
  Receipt Date: 20191009
  Transmission Date: 20200122
  Serious: Yes (Hospitalization, Other)
  Sender: FDA-Public Use
  Company Number: JP-BAUSCH-BL-2019-025801

PATIENT
  Age: 75 Year
  Sex: Female

DRUGS (3)
  1. DORZOLAMIDE, TIMOLOL [Concomitant]
     Active Substance: DORZOLAMIDE\TIMOLOL
     Indication: NORMAL TENSION GLAUCOMA
     Dates: start: 2012
  2. LATANOPROST. [Concomitant]
     Active Substance: LATANOPROST
     Indication: NORMAL TENSION GLAUCOMA
     Dosage: IN BOTH EYES
     Route: 047
     Dates: start: 2004
  3. BRIMONIDINE TARTRATE. [Suspect]
     Active Substance: BRIMONIDINE TARTRATE
     Indication: NORMAL TENSION GLAUCOMA
     Dosage: EYE DROP WAS USED IN BOTH EYES
     Route: 047
     Dates: start: 2013

REACTIONS (4)
  - Hypersensitivity [Recovered/Resolved with Sequelae]
  - Corneal neovascularisation [Recovered/Resolved with Sequelae]
  - Corneal infiltrates [Recovered/Resolved with Sequelae]
  - Blepharitis [Recovered/Resolved with Sequelae]
